FAERS Safety Report 4880846-6 (Version None)
Quarter: 2005Q4

REPORT INFORMATION
  Report Type: 
  Country: None (occurrence: None)
  Receive Date: 20051223
  Receipt Date: 20051028
  Transmission Date: 20060501
  Serious: No
  Sender: FDA-Public Use
  Company Number: 05P-163-0315745-00

PATIENT
  Age: 63 Year
  Sex: Female
  Weight: 82.1011 kg

DRUGS (6)
  1. HUMIRA [Suspect]
     Indication: RHEUMATOID ARTHRITIS
     Dosage: 40 MG, 1 IN 2 WK, SUBCUTANEOUS
     Route: 058
     Dates: start: 20050101
  2. HYDROCHLOROTHIAZIDE [Concomitant]
  3. PAROXETINE HYDROCHLORIDE [Concomitant]
  4. FERROUS SULFATE TAB [Concomitant]
  5. UNKNOWN STOMACH PILL [Concomitant]
  6. ASPIRIN [Concomitant]

REACTIONS (4)
  - ASTHENIA [None]
  - FEELING HOT [None]
  - FULL BLOOD COUNT ABNORMAL [None]
  - RHEUMATOID ARTHRITIS [None]
